FAERS Safety Report 4393723-4 (Version None)
Quarter: 2004Q3

REPORT INFORMATION
  Report Type: 
  Country: None (occurrence: None)
  Receive Date: 20040709
  Receipt Date: 20030911
  Transmission Date: 20050211
  Serious: Yes (Life-Threatening)
  Sender: FDA-Public Use
  Company Number: JP-GLAXOSMITHKLINE-B0308970A

PATIENT
  Age: 57 Year
  Sex: Female
  Weight: 46.5 kg

DRUGS (22)
  1. MELPHALAN [Suspect]
     Route: 042
     Dates: start: 20030227, end: 20030227
  2. ENDOXAN [Suspect]
     Dates: start: 20030224, end: 20030225
  3. ETOPOSIDE [Suspect]
     Route: 042
     Dates: start: 20030224, end: 20040226
  4. DECADRON [Concomitant]
     Dates: start: 20030224, end: 20030227
  5. GRAN [Concomitant]
     Dates: start: 20030301, end: 20030310
  6. LEVOFLOXACIN [Concomitant]
     Route: 048
     Dates: start: 20030221, end: 20030310
  7. DIFLUCAN [Concomitant]
     Route: 048
     Dates: start: 20030221, end: 20030310
  8. BAKTAR [Concomitant]
     Route: 048
     Dates: start: 20030221, end: 20030227
  9. BAKTAR [Concomitant]
     Dosage: 8G PER DAY
     Route: 048
     Dates: start: 20030311
  10. ACYCLOVIR [Concomitant]
     Route: 042
     Dates: start: 20030301, end: 20030314
  11. GASTER D [Concomitant]
     Route: 048
     Dates: start: 20030305
  12. LENDORM [Concomitant]
     Route: 048
     Dates: start: 20030305, end: 20030312
  13. BUSCOPAN [Concomitant]
     Dates: start: 20030302, end: 20030302
  14. PRIMPERAN INJ [Concomitant]
     Dates: start: 20030226, end: 20030309
  15. KYTRIL [Concomitant]
     Route: 042
     Dates: start: 20030224, end: 20030227
  16. MAXIPIME [Concomitant]
     Route: 042
     Dates: start: 20030303, end: 20030304
  17. BIKLIN [Concomitant]
     Dates: start: 20030303, end: 20030306
  18. MEROPEN [Concomitant]
     Route: 042
     Dates: start: 20030304, end: 20030307
  19. GAMIMUNE N 5% [Concomitant]
     Route: 042
     Dates: start: 20030305, end: 20030307
  20. MINOMYCIN [Concomitant]
     Route: 042
     Dates: start: 20030307, end: 20030310
  21. TIENAM [Concomitant]
     Dates: start: 20030307, end: 20030310
  22. LASIX [Concomitant]
     Dates: start: 20030225, end: 20030227

REACTIONS (2)
  - INFECTION [None]
  - PYREXIA [None]
